FAERS Safety Report 20577676 (Version 1)
Quarter: 2022Q1

REPORT INFORMATION
  Report Type: Spontaneous
  Country: US (occurrence: None)
  Receive Date: 20220310
  Receipt Date: 20220310
  Transmission Date: 20220423
  Serious: No
  Sender: FDA-Public Use
  Company Number: None

PATIENT
  Sex: Female

DRUGS (1)
  1. AMBRISENTAN [Suspect]
     Active Substance: AMBRISENTAN
     Indication: Pulmonary arterial hypertension
     Dosage: FREQUENCY : DAILY;?
     Route: 048
     Dates: start: 20211221

REACTIONS (6)
  - Product dose omission issue [None]
  - Dyspnoea exertional [None]
  - Nausea [None]
  - Abdominal distension [None]
  - Decreased appetite [None]
  - Platelet count decreased [None]
